FAERS Safety Report 7384188-9 (Version None)
Quarter: 2011Q1

REPORT INFORMATION
  Report Type: 
  Country: None (occurrence: None)
  Receive Date: 20110330
  Receipt Date: 20110323
  Transmission Date: 20110831
  Serious: Yes (Hospitalization)
  Sender: FDA-Public Use
  Company Number: B0709225A

PATIENT
  Sex: Male

DRUGS (2)
  1. VOLTAREN [Concomitant]
  2. SUMATRIPTAN SUCCINATE [Suspect]
     Indication: HEMICEPHALALGIA
     Dates: start: 20100907

REACTIONS (6)
  - MYOCARDIAL INFARCTION [None]
  - TROPONIN INCREASED [None]
  - HYPOAESTHESIA [None]
  - HEADACHE [None]
  - CHEST PAIN [None]
  - VENTRICULAR HYPERTROPHY [None]
